FAERS Safety Report 22599328 (Version 1)
Quarter: 2023Q2

REPORT INFORMATION
  Report Type: Spontaneous
  Country: US (occurrence: None)
  Receive Date: 20230613
  Receipt Date: 20230613
  Transmission Date: 20230722
  Serious: Yes (Hospitalization)
  Sender: FDA-Public Use
  Company Number: None

PATIENT
  Sex: Female

DRUGS (1)
  1. CAPECITABINE [Suspect]
     Active Substance: CAPECITABINE
     Dosage: FREQUENCY : TWICE A DAY;?
     Route: 048

REACTIONS (10)
  - COVID-19 [None]
  - Pneumonia [None]
  - Memory impairment [None]
  - Visual impairment [None]
  - Constipation [None]
  - Blood creatinine decreased [None]
  - Blood glucose increased [None]
  - Laboratory test abnormal [None]
  - Off label use [None]
  - Off label use [None]
